FAERS Safety Report 8510715-1 (Version None)
Quarter: 2012Q3

REPORT INFORMATION
  Report Type: 
  Country: None (occurrence: None)
  Receive Date: 20120716
  Receipt Date: 20120714
  Transmission Date: 20120928
  Serious: Yes (Other)
  Sender: FDA-Public Use
  Company Number: US-PFIZER INC-2012169738

PATIENT
  Sex: Female
  Weight: 61.224 kg

DRUGS (5)
  1. CHANTIX [Suspect]
     Dosage: UNK
     Route: 048
     Dates: start: 20080101, end: 20080101
  2. CHANTIX [Suspect]
     Indication: SMOKING CESSATION THERAPY
     Dosage: 0.5 MG, 1X/DAY
     Route: 048
     Dates: start: 20080101, end: 20080101
  3. HYDROCODONE [Concomitant]
     Dosage: UNK
  4. METHOCARBAMOL [Concomitant]
     Dosage: UNK
  5. CHLORDIAZEPOXIDE [Concomitant]
     Dosage: UNK

REACTIONS (5)
  - DEPRESSION [None]
  - AGGRESSION [None]
  - AGITATION [None]
  - FEELING ABNORMAL [None]
  - NAUSEA [None]
